FAERS Safety Report 6718978-X (Version None)
Quarter: 2010Q2

REPORT INFORMATION
  Report Type: 
  Country: None (occurrence: None)
  Receive Date: 20100511
  Receipt Date: 20100503
  Transmission Date: 20101027
  Serious: Yes (Life-Threatening)
  Sender: FDA-Public Use
  Company Number: NO-BAYER-201023932GPV

PATIENT
  Age: 25 Year
  Sex: Female

DRUGS (1)
  1. YASMIN [Suspect]
     Indication: DRUG USE FOR UNKNOWN INDICATION
     Route: 048
     Dates: start: 20091001, end: 20100405

REACTIONS (2)
  - PULMONARY EMBOLISM [None]
  - PULMONARY INFARCTION [None]
